FAERS Safety Report 7409965-7 (Version None)
Quarter: 2011Q2

REPORT INFORMATION
  Report Type: 
  Country: None (occurrence: None)
  Receive Date: 20110412
  Receipt Date: 20110407
  Transmission Date: 20111010
  Serious: Yes (Other)
  Sender: FDA-Public Use
  Company Number: US-CELGENEUS-163-20785-10121693

PATIENT
  Sex: Male

DRUGS (2)
  1. THALOMID [Suspect]
     Indication: BEHCET'S SYNDROME
     Dosage: 100 MILLIGRAM
     Route: 048
     Dates: start: 20100908, end: 20101209
  2. THALOMID [Suspect]
     Dosage: 100 MILLIGRAM
     Route: 048
     Dates: start: 20101215

REACTIONS (2)
  - DIZZINESS [None]
  - TREMOR [None]
